FAERS Safety Report 5046698-9 (Version None)
Quarter: 2006Q3

REPORT INFORMATION
  Report Type: 
  Country: None (occurrence: None)
  Receive Date: 20060705
  Receipt Date: 20060705
  Transmission Date: 20061208
  Serious: Yes (Other)
  Sender: FDA-Public Use
  Company Number: None

PATIENT
  Age: 40 Year
  Sex: Male

DRUGS (7)
  1. DIFLUCAN [Suspect]
     Indication: TINEA INFECTION
     Dosage: 150 MG ORALLY
     Route: 048
     Dates: start: 20060501
  2. TIMENTIN [Concomitant]
  3. PEPCID [Concomitant]
  4. LOTRAMIN ULTRA** [Concomitant]
  5. NEUTRAPHOS [Concomitant]
  6. SOLU-MEDROL [Concomitant]
  7. ACTIVAN [Concomitant]

REACTIONS (1)
  - SINUS BRADYCARDIA [None]
